FAERS Safety Report 7169598-7 (Version None)
Quarter: 2010Q4

REPORT INFORMATION
  Report Type: 
  Country: None (occurrence: None)
  Receive Date: 20101217
  Receipt Date: 20101207
  Transmission Date: 20110411
  Serious: Yes (Other)
  Sender: FDA-Public Use
  Company Number: BR-JNJFOC-20101204377

PATIENT
  Sex: Female

DRUGS (1)
  1. ORTHO EVRA [Suspect]
     Indication: PRODUCT USED FOR UNKNOWN INDICATION
     Dosage: ETHINYL ESTRADIOL 0.6 MG/ NORELGESTROMIN 6 MG
     Route: 062

REACTIONS (3)
  - NEOPLASM MALIGNANT [None]
  - SKIN HAEMORRHAGE [None]
  - SKIN HYPOPIGMENTATION [None]
